FAERS Safety Report 5586501-1 (Version None)
Quarter: 2007Q4

REPORT INFORMATION
  Report Type: 
  Country: None (occurrence: None)
  Receive Date: 20071205
  Receipt Date: 20070410
  Transmission Date: 20080405
  Serious: Yes (Other)
  Sender: FDA-Public Use
  Company Number: HQWYE318111APR07

PATIENT
  Age: 68 Year
  Sex: Female
  Weight: 72.19 kg

DRUGS (8)
  1. EFFEXOR XR [Suspect]
     Indication: ANXIETY
     Dosage: SEE IMAGE
     Route: 048
     Dates: start: 20070301, end: 20070301
  2. EFFEXOR XR [Suspect]
     Indication: ANXIETY
     Dosage: SEE IMAGE
     Route: 048
     Dates: start: 20070301, end: 20070301
  3. EFFEXOR XR [Suspect]
     Indication: ANXIETY
     Dosage: SEE IMAGE
     Route: 048
     Dates: end: 20070301
  4. EFFEXOR XR [Suspect]
     Indication: ANXIETY
     Dosage: SEE IMAGE
     Route: 048
     Dates: start: 20070301, end: 20070401
  5. ATENOLOL [Concomitant]
  6. HYDROCHLOROTHIAZIDE [Concomitant]
  7. POTASSIUM (POTASSIUM) [Concomitant]
  8. CALCIUM (CALCIUM) [Concomitant]

REACTIONS (8)
  - DIZZINESS [None]
  - DRUG EFFECT DECREASED [None]
  - DRUG WITHDRAWAL SYNDROME [None]
  - NAUSEA [None]
  - RESTLESS LEGS SYNDROME [None]
  - RESTLESSNESS [None]
  - SLEEP DISORDER [None]
  - VOMITING [None]
